FAERS Safety Report 5662758-3 (Version None)
Quarter: 2008Q1

REPORT INFORMATION
  Report Type: 
  Country: None (occurrence: None)
  Receive Date: 20080221
  Receipt Date: 20070301
  Transmission Date: 20080703
  Serious: Yes (Other)
  Sender: FDA-Public Use
  Company Number: PHEH2007US02563

PATIENT

DRUGS (1)
  1. DIOVAN [Suspect]

REACTIONS (1)
  - HYPERKALAEMIA [None]
